FAERS Safety Report 10651877 (Version 2)
Quarter: 2014Q4

REPORT INFORMATION
  Report Type: Report from Study
  Country: US (occurrence: US)
  Receive Date: 20141215
  Receipt Date: 20141222
  Transmission Date: 20150529
  Serious: No
  Sender: FDA-Public Use
  Company Number: US-VERTEX PHARMACEUTICALS-2014-004817

PATIENT
  Age: 11 Year
  Sex: Female

DRUGS (1)
  1. IVACAFTOR [Suspect]
     Active Substance: IVACAFTOR
     Indication: CYSTIC FIBROSIS
     Dosage: UNK
     Route: 048
     Dates: start: 20120306

REACTIONS (2)
  - Vitamin D decreased [Not Recovered/Not Resolved]
  - Pancreatic insufficiency [Unknown]

NARRATIVE: CASE EVENT DATE: 20140910
